FAERS Safety Report 4763190-7 (Version None)
Quarter: 2005Q3

REPORT INFORMATION
  Report Type: 
  Country: None (occurrence: None)
  Receive Date: 20050906
  Receipt Date: 20050825
  Transmission Date: 20060218
  Serious: Yes (Hospitalization)
  Sender: FDA-Public Use
  Company Number: 05-08-1472

PATIENT
  Age: 43 Year
  Sex: Female

DRUGS (4)
  1. CEPHALEXIN [Suspect]
     Dosage: ORAL
     Route: 048
  2. ETHANOL [Suspect]
     Dosage: ORAL
     Route: 048
  3. SERETIDE [Concomitant]
  4. ALBUTEROL SULFATE HFA [Concomitant]

REACTIONS (4)
  - ALCOHOL USE [None]
  - HALLUCINATION, VISUAL [None]
  - PARANOIA [None]
  - PSYCHOTIC DISORDER [None]
